FAERS Safety Report 5801177-3 (Version None)
Quarter: 2008Q3

REPORT INFORMATION
  Report Type: 
  Country: None (occurrence: None)
  Receive Date: 20080707
  Receipt Date: 20080624
  Transmission Date: 20090109
  Serious: Yes (Death, Life-Threatening)
  Sender: FDA-Public Use
  Company Number: FR-ELI_LILLY_AND_COMPANY-FR200806005149

PATIENT
  Sex: Female

DRUGS (13)
  1. ZYPREXA [Suspect]
     Indication: CONFUSIONAL STATE
     Dosage: 5 MG, DAILY (1/D)
     Route: 048
     Dates: start: 20080509, end: 20080514
  2. LOVENOX [Concomitant]
     Indication: PHLEBITIS SUPERFICIAL
     Dosage: 1.2 D/F, DAILY (1/D)
     Route: 058
     Dates: start: 20080506, end: 20080514
  3. KARDEGIC [Concomitant]
     Dosage: 75 MG, DAILY (1/D)
     Route: 048
     Dates: start: 20070514, end: 20080514
  4. SKENAN [Concomitant]
     Indication: SCIATICA
     Dates: end: 20080510
  5. MORPHINE [Concomitant]
     Indication: SCIATICA
     Dates: end: 20080510
  6. HAVLANE [Concomitant]
     Dosage: 1 MG, UNK
     Route: 048
     Dates: end: 20080504
  7. OMEPRAZOLE [Concomitant]
     Dosage: 20 MG, UNK
     Dates: end: 20080514
  8. DISCOTRINE [Concomitant]
     Dates: end: 20080514
  9. LASIX [Concomitant]
     Dates: end: 20080514
  10. ZESTRIL [Concomitant]
     Dates: end: 20080514
  11. CITALOPRAM HYDROBROMIDE [Concomitant]
     Route: 048
     Dates: end: 20080514
  12. ANAFRANIL [Concomitant]
     Dosage: 75 MG, UNK
     Dates: end: 20080514
  13. RISPERDAL [Concomitant]
     Dates: end: 20080504

REACTIONS (4)
  - BLOOD PRESSURE INCREASED [None]
  - BRONCHIAL SECRETION RETENTION [None]
  - CEREBRAL HAEMORRHAGE [None]
  - PERSECUTORY DELUSION [None]
